FAERS Safety Report 9319197 (Version 2)
Quarter: 2013Q2

REPORT INFORMATION
  Report Type: Spontaneous
  Country: US (occurrence: US)
  Receive Date: 20130530
  Receipt Date: 20130628
  Transmission Date: 20140414
  Serious: Yes (Hospitalization)
  Sender: FDA-Public Use
  Company Number: US-GILEAD-2013-0075811

PATIENT
  Sex: Female

DRUGS (4)
  1. LETAIRIS [Suspect]
     Indication: PULMONARY ARTERIAL HYPERTENSION
     Dosage: 10 MG, UNK
     Dates: start: 20080104
  2. LETAIRIS [Suspect]
     Dates: start: 20121016
  3. ADCIRCA [Concomitant]
  4. TYVASO [Concomitant]

REACTIONS (4)
  - Blood potassium decreased [Unknown]
  - Hallucination [Unknown]
  - Coma [Unknown]
  - Renal failure [Unknown]
